FAERS Safety Report 21375291 (Version 1)
Quarter: 2022Q3

REPORT INFORMATION
  Report Type: Spontaneous
  Country: CN (occurrence: CN)
  Receive Date: 20220926
  Receipt Date: 20220926
  Transmission Date: 20221027
  Serious: Yes (Hospitalization)
  Sender: FDA-Public Use
  Company Number: CN-NOVARTISPH-NVSC2022CN215653

PATIENT
  Age: 22 Year
  Sex: Male
  Weight: 75 kg

DRUGS (2)
  1. TRILEPTAL [Suspect]
     Active Substance: OXCARBAZEPINE
     Indication: Cerebral haemorrhage
     Dosage: 0.3 G, BID
     Route: 048
     Dates: start: 20220818, end: 20220914
  2. IDEBENONE [Concomitant]
     Active Substance: IDEBENONE
     Indication: Cerebral haemorrhage
     Dosage: 30 MG, TID
     Route: 048
     Dates: start: 20220826, end: 20220914

REACTIONS (1)
  - Drug eruption [Recovering/Resolving]

NARRATIVE: CASE EVENT DATE: 20220913
